FAERS Safety Report 22627499 (Version 1)
Quarter: 2023Q2

REPORT INFORMATION
  Report Type: Report from Study
  Country: US (occurrence: US)
  Receive Date: 20230622
  Receipt Date: 20230622
  Transmission Date: 20230721
  Serious: Yes (Other)
  Sender: FDA-Public Use
  Company Number: US-AMGEN-USACT2023105922

PATIENT
  Age: 49 Year
  Sex: Male
  Weight: 123 kg

DRUGS (4)
  1. BLINATUMOMAB [Suspect]
     Active Substance: BLINATUMOMAB
     Indication: B precursor type acute leukaemia
     Dosage: TOTAL DOSE ADMINISTERED: 28 MICROGRAM
     Route: 065
  2. MERCAPTOPURINE [Suspect]
     Active Substance: MERCAPTOPURINE
     Indication: B precursor type acute leukaemia
     Dosage: 75 MILLIGRAM/SQ. METER, QD/ TOTAL DOSE ADMINISTERED: 75 MG
     Route: 048
  3. METHOTREXATE [Suspect]
     Active Substance: METHOTREXATE
     Indication: B precursor type acute leukaemia
     Dosage: 20MG/M2 PO OR IV ONCE PER WEEK FOR 2.5 YEARS/ TOTAL DOSE ADMINISTERED: 2.5 MG
     Route: 065
  4. VINCRISTINE SULFATE [Suspect]
     Active Substance: VINCRISTINE SULFATE
     Indication: B precursor type acute leukaemia
     Dosage: 1.4MG/M2 IV ON DAY I EVERY 3 MONTHS (MAXIMTUN 2 MG/DOSE) WITH PREDNISONE: 60MG/M2 PO ON DAYS 1-5 EVE
     Route: 042

REACTIONS (1)
  - Second primary malignancy [Not Recovered/Not Resolved]

NARRATIVE: CASE EVENT DATE: 20221215
